FAERS Safety Report 4667150-6 (Version None)
Quarter: 2005Q2

REPORT INFORMATION
  Report Type: 
  Country: None (occurrence: None)
  Receive Date: 20050520
  Receipt Date: 20040623
  Transmission Date: 20051028
  Serious: Yes (Other)
  Sender: FDA-Public Use
  Company Number: PHEH2004US06843

PATIENT
  Age: 81 Year
  Sex: Male

DRUGS (10)
  1. MARCAINE /USA/ [Concomitant]
     Indication: ANAESTHESIA
  2. XYLOCAINE [Concomitant]
     Indication: ANAESTHESIA
  3. ZOMETA [Suspect]
     Indication: PROSTATE CANCER METASTATIC
     Dosage: 4 MG MONTHLY
     Route: 042
     Dates: start: 20020411, end: 20040301
  4. EMCYT [Concomitant]
     Indication: PROSTATE CANCER
     Dosage: 280 MG TID DAYS 1-5
     Dates: start: 20020401
  5. DECADRON [Concomitant]
     Dosage: 8 MG, QD DAYS 1-5
  6. DECADRON [Concomitant]
     Dosage: 20 MG DAY 3
     Route: 042
  7. TAXOTERE [Concomitant]
     Dosage: 100 MG DAY 3
     Route: 042
  8. ANZEMET [Concomitant]
     Indication: ANTIEMETIC SUPPORTIVE CARE
     Dosage: 100 MG DAY 3
     Route: 042
  9. EPOGEN [Concomitant]
     Dosage: 20-40 K UNITS EVERY 2 WEEKS
     Route: 058
  10. NEULASTA [Concomitant]
     Dosage: 6 MG DAY 6
     Route: 058

REACTIONS (13)
  - BLOOD CREATININE INCREASED [None]
  - DENTAL CARIES [None]
  - FISTULA [None]
  - HYPOAESTHESIA [None]
  - IMPAIRED HEALING [None]
  - JAW DISORDER [None]
  - MANDIBULECTOMY [None]
  - OSTEOMYELITIS [None]
  - OSTEONECROSIS [None]
  - PRIMARY SEQUESTRUM [None]
  - SURGERY [None]
  - SWELLING [None]
  - WOUND TREATMENT [None]
